FAERS Safety Report 17361247 (Version 1)
Quarter: 2020Q1

REPORT INFORMATION
  Report Type: Report from Study
  Country: US (occurrence: US)
  Receive Date: 20200203
  Receipt Date: 20200203
  Transmission Date: 20200409
  Serious: Yes (Other)
  Sender: FDA-Public Use
  Company Number: US-MYLANLABS-2020M1010865

PATIENT
  Age: 75 Year
  Sex: Male

DRUGS (3)
  1. VENETOCLAX. [Interacting]
     Active Substance: VENETOCLAX
     Indication: ACUTE MYELOID LEUKAEMIA
     Dosage: UNK
     Route: 065
  2. FLUCONAZOLE. [Interacting]
     Active Substance: FLUCONAZOLE
     Indication: ANTIFUNGAL PROPHYLAXIS
     Route: 065
  3. DECITABINE. [Suspect]
     Active Substance: DECITABINE
     Indication: ACUTE MYELOID LEUKAEMIA
     Dosage: FIVE-DAY COURSE
     Route: 065

REACTIONS (6)
  - Sinusitis [Unknown]
  - Cerebral infarction [Unknown]
  - Drug interaction [Unknown]
  - Neutropenia [Unknown]
  - Mucormycosis [Unknown]
  - Bone marrow failure [Unknown]
